FAERS Safety Report 24131634 (Version 1)
Quarter: 2024Q3

REPORT INFORMATION
  Report Type: Report from Study
  Country: IT (occurrence: IT)
  Receive Date: 20240724
  Receipt Date: 20240724
  Transmission Date: 20241017
  Serious: Yes (Hospitalization)
  Sender: ROCHE
  Company Number: None

PATIENT
  Age: 60 Year
  Sex: Male

DRUGS (2)
  1. ATEZOLIZUMAB [Suspect]
     Active Substance: ATEZOLIZUMAB
     Indication: Hepatic cancer
     Dosage: 1200 MG SOMMINISTRAZIONE CICLICA
     Route: 042
     Dates: start: 20240520, end: 20240520
  2. BEVACIZUMAB [Suspect]
     Active Substance: BEVACIZUMAB
     Indication: Hepatic cancer
     Dosage: 1150 MG SOMMINISTRAZIONE CICLICA
     Route: 042
     Dates: start: 20240520, end: 20240520

REACTIONS (3)
  - Chest pain [Recovered/Resolved]
  - Back pain [Recovered/Resolved]
  - Infusion related reaction [Recovered/Resolved]

NARRATIVE: CASE EVENT DATE: 20240520
